FAERS Safety Report 21616487 (Version 1)
Quarter: 2022Q4

REPORT INFORMATION
  Report Type: Report from Study
  Country: US (occurrence: US)
  Receive Date: 20221118
  Receipt Date: 20221118
  Transmission Date: 20230112
  Serious: No
  Sender: FDA-Public Use
  Company Number: US-ABBVIE-22K-163-4477939-00

PATIENT
  Sex: Male

DRUGS (4)
  1. IMBRUVICA [Suspect]
     Active Substance: IBRUTINIB
     Indication: Chronic lymphocytic leukaemia
     Route: 048
  2. Pfizer/BioNTech covid-19 vaccination [Concomitant]
     Indication: COVID-19 immunisation
     Dosage: FIRST DOSE, FREQUENCY- ONE IN ONCE
     Route: 030
     Dates: start: 20210501, end: 20210501
  3. Pfizer/BioNTech covid-19 vaccination [Concomitant]
     Indication: COVID-19 immunisation
     Dosage: SECOND DOSE, FREQUENCY- ONE IN ONCE
     Route: 030
     Dates: start: 20210530, end: 20210530
  4. Pfizer/BioNTech covid-19 vaccination [Concomitant]
     Indication: COVID-19 immunisation
     Dosage: THIRD DOSE, FREQUENCY- ONE IN ONCE
     Route: 030
     Dates: start: 20200101, end: 20220101

REACTIONS (2)
  - Fatigue [Recovered/Resolved]
  - Nausea [Recovering/Resolving]
